FAERS Safety Report 10646469 (Version 2)
Quarter: 2015Q1

REPORT INFORMATION
  Report Type: Spontaneous
  Country: US (occurrence: US)
  Receive Date: 20141211
  Receipt Date: 20150224
  Transmission Date: 20150720
  Serious: No
  Sender: FDA-Public Use
  Company Number: US-GLAXOSMITHKLINE-US2014GSK027438

PATIENT
  Age: 66 Year
  Sex: Female

DRUGS (19)
  1. ALBUTEROL NEBULIZER [Concomitant]
     Active Substance: ALBUTEROL
  2. FISH OIL [Concomitant]
     Active Substance: FISH OIL
  3. MAGNESIUM [Concomitant]
     Active Substance: MAGNESIUM
  4. LOSARTAN [Concomitant]
     Active Substance: LOSARTAN
  5. TUDORZA PRESSAIR [Concomitant]
     Active Substance: ACLIDINIUM BROMIDE
  6. CALCIUM [Concomitant]
     Active Substance: CALCIUM
  7. COQ10 [Concomitant]
     Active Substance: UBIDECARENONE
  8. METHOTREXATE [Concomitant]
     Active Substance: METHOTREXATE
  9. VITAMIN C [Concomitant]
     Active Substance: ASCORBIC ACID
  10. VENTOLIN [Concomitant]
     Active Substance: ALBUTEROL SULFATE
  11. OXYGEN. [Concomitant]
     Active Substance: OXYGEN
  12. SPIRONOLACTONE. [Concomitant]
     Active Substance: SPIRONOLACTONE
  13. VITAMIN D3 [Concomitant]
     Active Substance: CHOLECALCIFEROL
  14. ADVAIR DISKUS [Suspect]
     Active Substance: FLUTICASONE PROPIONATE\SALMETEROL XINAFOATE
     Indication: CHRONIC OBSTRUCTIVE PULMONARY DISEASE
     Dosage: UNK UNK, BID
     Route: 055
     Dates: start: 2012
  15. EVISTA [Concomitant]
     Active Substance: RALOXIFENE HYDROCHLORIDE
  16. MULTIVITAMIN [Concomitant]
     Active Substance: VITAMINS
  17. ASPIRIN. [Concomitant]
     Active Substance: ASPIRIN
  18. FOLATE [Concomitant]
     Active Substance: FOLATE SODIUM
  19. LIPITOR [Concomitant]
     Active Substance: ATORVASTATIN CALCIUM

REACTIONS (3)
  - Dyspnoea [Unknown]
  - Dyspnoea [Not Recovered/Not Resolved]
  - Product quality issue [Unknown]

NARRATIVE: CASE EVENT DATE: 201411
